FAERS Safety Report 13489534 (Version 1)
Quarter: 2017Q2

REPORT INFORMATION
  Report Type: Spontaneous
  Country: US (occurrence: US)
  Receive Date: 20170426
  Receipt Date: 20170426
  Transmission Date: 20170830
  Serious: No
  Sender: FDA-Public Use
  Company Number: US-ALKERMES INC.-ALK-2017-000355

PATIENT
  Age: 41 Year
  Sex: Female
  Weight: 38.95 kg

DRUGS (3)
  1. VIVITROL [Suspect]
     Active Substance: NALTREXONE
     Indication: ALCOHOLISM
     Dosage: 380 MG, QMO
     Route: 030
     Dates: start: 20170123
  2. VIVITROL [Suspect]
     Active Substance: NALTREXONE
     Indication: DRUG USE DISORDER
  3. SEROQUEL [Concomitant]
     Active Substance: QUETIAPINE FUMARATE
     Indication: PRODUCT USED FOR UNKNOWN INDICATION
     Dosage: UNK

REACTIONS (18)
  - Cold sweat [Unknown]
  - Skin discolouration [Unknown]
  - Injection site reaction [Recovering/Resolving]
  - Hypertension [Unknown]
  - Withdrawal syndrome [Unknown]
  - Headache [Recovered/Resolved]
  - Panic attack [Unknown]
  - Injection site pain [Unknown]
  - Feeling cold [Unknown]
  - Tremor [Unknown]
  - Abdominal discomfort [Unknown]
  - Vomiting [Unknown]
  - Heart rate decreased [Unknown]
  - Eye colour change [Unknown]
  - Dizziness [Recovered/Resolved]
  - Hyperhidrosis [Unknown]
  - Injection site mass [Not Recovered/Not Resolved]
  - Injection site pruritus [Not Recovered/Not Resolved]

NARRATIVE: CASE EVENT DATE: 201701
